FAERS Safety Report 10971787 (Version 2)
Quarter: 2015Q2

REPORT INFORMATION
  Report Type: Spontaneous
  Country: IE (occurrence: IE)
  Receive Date: 20150331
  Receipt Date: 20150521
  Transmission Date: 20150821
  Serious: Yes (Hospitalization)
  Sender: FDA-Public Use
  Company Number: PHFR2015IE002626

PATIENT
  Age: 48 Year
  Sex: Female

DRUGS (6)
  1. VENLAFAXINE//VENLAFAXINE HYDROCHLORIDE [Concomitant]
     Indication: ANTIDEPRESSANT THERAPY
     Dosage: 225 MG, QD
     Route: 048
  2. STILNOCT [Concomitant]
     Active Substance: ZOLPIDEM TARTRATE
     Indication: HYPNOTHERAPY
     Dosage: 10 MG, QD
     Route: 048
  3. CLOZARIL [Suspect]
     Active Substance: CLOZAPINE
     Indication: SCHIZOPHRENIA
     Dosage: 175 MG, QD
     Route: 048
     Dates: start: 20031112
  4. MIRTAZAPIN [Concomitant]
     Active Substance: MIRTAZAPINE
     Indication: ANTIDEPRESSANT THERAPY
     Dosage: 15 MG, QD
     Route: 048
  5. CLOZARIL [Suspect]
     Active Substance: CLOZAPINE
     Indication: BIPOLAR DISORDER
  6. PREGABALIN. [Concomitant]
     Active Substance: PREGABALIN
     Indication: ANXIOLYTIC THERAPY
     Dosage: 75 MG, BID
     Route: 048

REACTIONS (4)
  - Dysarthria [Recovered/Resolved]
  - Pneumonia [Recovered/Resolved]
  - Off label use [Unknown]
  - Urinary tract infection [Recovered/Resolved]

NARRATIVE: CASE EVENT DATE: 20031112
